FAERS Safety Report 7756437-6 (Version None)
Quarter: 2011Q3

REPORT INFORMATION
  Report Type: 
  Country: None (occurrence: None)
  Receive Date: 20110916
  Receipt Date: 20110906
  Transmission Date: 20111222
  Serious: Yes (Hospitalization)
  Sender: FDA-Public Use
  Company Number: MX-SANOFI-AVENTIS-2011SA046437

PATIENT
  Age: 78 Year
  Sex: Male
  Weight: 72 kg

DRUGS (9)
  1. DRONEDARONE HCL [Suspect]
     Indication: ATRIAL FIBRILLATION
     Route: 048
     Dates: start: 20110518, end: 20110707
  2. LOSARTAN POTASSIUM [Concomitant]
  3. FUROSEMIDE [Concomitant]
  4. PRASUGREL [Concomitant]
  5. AMLODIPINE [Concomitant]
  6. ASPIRIN [Concomitant]
  7. ATORVASTATIN [Concomitant]
  8. METFORMIN HCL [Concomitant]
  9. DIAZEPAM [Concomitant]

REACTIONS (9)
  - SYNCOPE [None]
  - HEART RATE DECREASED [None]
  - OEDEMA PERIPHERAL [None]
  - BUNDLE BRANCH BLOCK BILATERAL [None]
  - ATRIOVENTRICULAR BLOCK FIRST DEGREE [None]
  - INTERNATIONAL NORMALISED RATIO INCREASED [None]
  - ATRIAL FIBRILLATION [None]
  - ELECTROCARDIOGRAM Q WAVE ABNORMAL [None]
  - CAROTID ARTERIOSCLEROSIS [None]
